FAERS Safety Report 9127860 (Version 1)
Quarter: 2013Q1

REPORT INFORMATION
  Report Type: Spontaneous
  Country: US (occurrence: US)
  Receive Date: 20130228
  Receipt Date: 20130228
  Transmission Date: 20140127
  Serious: Yes (Hospitalization)
  Sender: FDA-Public Use
  Company Number: US-PFIZER INC-2013071604

PATIENT
  Age: 60 Year
  Sex: Female
  Weight: 72.6 kg

DRUGS (6)
  1. EFFEXOR XR [Suspect]
     Indication: HOT FLUSH
     Dosage: 75 MG, 1X/DAY
     Route: 048
     Dates: start: 2012, end: 2012
  2. DETROL LA [Suspect]
     Indication: URINARY INCONTINENCE
     Dosage: 4 MG, 1X/DAY
     Route: 048
     Dates: start: 2012
  3. ZOLOFT [Suspect]
     Indication: DEPRESSION
     Dosage: 50 MG, 1X/DAY
     Route: 048
  4. METOPROLOL [Concomitant]
     Indication: BLOOD PRESSURE ABNORMAL
     Dosage: 25 MG, UNK
  5. PRAVASTATIN [Concomitant]
     Indication: BLOOD CHOLESTEROL INCREASED
     Dosage: 80 MG, UNK
  6. ASPIRIN [Concomitant]
     Indication: ANTICOAGULANT THERAPY
     Dosage: UNK

REACTIONS (7)
  - Myocardial infarction [Unknown]
  - Chest discomfort [Recovered/Resolved]
  - Tremor [Recovered/Resolved]
  - Urinary incontinence [Not Recovered/Not Resolved]
  - Cardiac discomfort [Recovered/Resolved]
  - Malaise [Recovered/Resolved]
  - Off label use [Unknown]
